FAERS Safety Report 11661578 (Version 1)
Quarter: 2015Q4

REPORT INFORMATION
  Report Type: Spontaneous
  Country: GR (occurrence: GR)
  Receive Date: 20151026
  Receipt Date: 20151026
  Transmission Date: 20160304
  Serious: Yes (Other)
  Sender: FDA-Public Use
  Company Number: GR-SA-2015SA163902

PATIENT
  Sex: Female

DRUGS (1)
  1. AUBAGIO [Suspect]
     Active Substance: TERIFLUNOMIDE
     Indication: RELAPSING-REMITTING MULTIPLE SCLEROSIS
     Route: 048
     Dates: start: 201502, end: 201508

REACTIONS (2)
  - Uterine leiomyoma [Unknown]
  - Progressive relapsing multiple sclerosis [Unknown]

NARRATIVE: CASE EVENT DATE: 201508
